FAERS Safety Report 16241004 (Version 1)
Quarter: 2019Q2

REPORT INFORMATION
  Report Type: Spontaneous
  Country: HU (occurrence: HU)
  Receive Date: 20190425
  Receipt Date: 20190425
  Transmission Date: 20190711
  Serious: Yes (Hospitalization)
  Sender: FDA-Public Use
  Company Number: HU-009507513-1904HUN005380

PATIENT
  Age: 77 Year
  Sex: Female
  Weight: 47 kg

DRUGS (10)
  1. CONCOR [Concomitant]
     Active Substance: BISOPROLOL FUMARATE
     Dosage: 2.5 MILLIGRAM, ONCE DAILY
     Route: 048
  2. POTASSIUM (UNSPECIFIED) [Concomitant]
     Active Substance: POTASSIUM
     Dosage: 1 GRAM, ONCE DAILY
     Route: 048
  3. KEYTRUDA [Suspect]
     Active Substance: PEMBROLIZUMAB
     Indication: LUNG NEOPLASM MALIGNANT
     Dosage: 200 MILLIGRAM, ONCE EVERY 3 WEEKS, 50MG INFUSION
     Dates: start: 20190110
  4. BRETARIS [Concomitant]
     Active Substance: ACLIDINIUM BROMIDE
     Dosage: 322 MICROGRAM/DOSE, ONCE DAILY
     Route: 048
  5. KEYTRUDA [Suspect]
     Active Substance: PEMBROLIZUMAB
     Dosage: 200 MILLIGRAM, ONCE EVERY 3 WEEKS, 50MG INFUSION
     Dates: start: 20190131
  6. KEYTRUDA [Suspect]
     Active Substance: PEMBROLIZUMAB
     Dosage: 200 MILLIGRAM, ONCE EVERY 3 WEEKS, 50MG INFUSION
     Dates: end: 20190221
  7. MEDROL [Concomitant]
     Active Substance: METHYLPREDNISOLONE
     Dosage: 36 MILLIGRAM, 2 TIMES PER DAY
     Route: 048
  8. THEOSPIREX (THEOPHYLLINE) [Concomitant]
     Active Substance: THEOPHYLLINE ANHYDROUS
     Dosage: 150 MILLIGRAM, 2 TIMES PER DAY
     Route: 048
  9. VENTOLIN [Concomitant]
     Active Substance: ALBUTEROL SULFATE
     Dosage: 100 MICROGRAM/DOSE AS NEEDED
  10. PANTOPRAZOLE [Concomitant]
     Active Substance: PANTOPRAZOLE
     Dosage: 20 MILLIGRAM, 2 TIMES PER DAY
     Route: 048

REACTIONS (2)
  - Pneumonitis [Recovering/Resolving]
  - Immune-mediated adverse reaction [Recovering/Resolving]

NARRATIVE: CASE EVENT DATE: 2019
